FAERS Safety Report 20750663 (Version 1)
Quarter: 2022Q2

REPORT INFORMATION
  Report Type: Spontaneous
  Country: US (occurrence: None)
  Receive Date: 20220426
  Receipt Date: 20220426
  Transmission Date: 20220721
  Serious: Yes (unspecified)
  Sender: FDA-Public Use
  Company Number: None

PATIENT
  Sex: Female

DRUGS (1)
  1. CEFDINIR [Suspect]
     Active Substance: CEFDINIR
     Indication: Ear infection
     Dosage: OTHER QUANTITY : 14 CAPSULE(S);?
     Route: 048
     Dates: start: 20220122, end: 20220124

REACTIONS (2)
  - Anorectal discomfort [None]
  - Clostridium difficile infection [None]

NARRATIVE: CASE EVENT DATE: 20220124
